FAERS Safety Report 11333484 (Version 1)
Quarter: 2015Q3

REPORT INFORMATION
  Report Type: Spontaneous
  Country: US (occurrence: US)
  Receive Date: 20150803
  Receipt Date: 20150803
  Transmission Date: 20151125
  Serious: No
  Sender: FDA-Public Use
  Company Number: US-ELI_LILLY_AND_COMPANY-US200802006262

PATIENT
  Age: 21 Year
  Sex: Male

DRUGS (10)
  1. SEROQUEL [Concomitant]
     Active Substance: QUETIAPINE FUMARATE
     Dates: start: 20071121, end: 20080205
  2. CLONIDINE. [Concomitant]
     Active Substance: CLONIDINE
  3. ZYPREXA [Suspect]
     Active Substance: OLANZAPINE
     Dosage: 10 MG, UNK
     Dates: start: 20071009, end: 20071121
  4. LEXAPRO [Concomitant]
     Active Substance: ESCITALOPRAM OXALATE
  5. LAMICTAL [Concomitant]
     Active Substance: LAMOTRIGINE
  6. TOPAMAX [Concomitant]
     Active Substance: TOPIRAMATE
  7. ZYPREXA [Suspect]
     Active Substance: OLANZAPINE
     Dosage: 5 MG, UNK
     Dates: start: 20070919, end: 20071008
  8. REMERON [Concomitant]
     Active Substance: MIRTAZAPINE
  9. AMBIEN [Concomitant]
     Active Substance: ZOLPIDEM TARTRATE
  10. CLONAZEPAM. [Concomitant]
     Active Substance: CLONAZEPAM

REACTIONS (1)
  - Breast mass [Recovering/Resolving]
